FAERS Safety Report 14035046 (Version 1)
Quarter: 2017Q4

REPORT INFORMATION
  Report Type: Spontaneous
  Country: AT (occurrence: AT)
  Receive Date: 20171003
  Receipt Date: 20171003
  Transmission Date: 20180321
  Serious: Yes (Other)
  Sender: FDA-Public Use
  Company Number: AT-ASTRAZENECA-2017SE99217

PATIENT
  Age: 69 Year
  Sex: Male

DRUGS (3)
  1. TARCEVA [Concomitant]
     Active Substance: ERLOTINIB HYDROCHLORIDE
     Dosage: 100.0MG UNKNOWN
     Dates: start: 201302, end: 201505
  2. IRESSA [Suspect]
     Active Substance: GEFITINIB
     Route: 048
     Dates: start: 201301, end: 201302
  3. GILOTRIF [Concomitant]
     Active Substance: AFATINIB
     Route: 048

REACTIONS (3)
  - Hepatotoxicity [Unknown]
  - Metastases to lymph nodes [Unknown]
  - Metastases to central nervous system [Unknown]

NARRATIVE: CASE EVENT DATE: 201310
